FAERS Safety Report 9455632 (Version 3)
Quarter: 2013Q4

REPORT INFORMATION
  Report Type: Spontaneous
  Country: US (occurrence: US)
  Receive Date: 20130813
  Receipt Date: 20131206
  Transmission Date: 20140711
  Serious: Yes (Other)
  Sender: FDA-Public Use
  Company Number: US-ASTELLAS-2013US008402

PATIENT
  Age: 78 Year
  Sex: Male
  Weight: 88 kg

DRUGS (3)
  1. XTANDI [Suspect]
     Indication: PRODUCT USED FOR UNKNOWN INDICATION
     Dosage: 160 MG, UID/QD
     Route: 048
     Dates: start: 20130726, end: 20131202
  2. COUMADIN /00014802/ [Interacting]
     Indication: DEEP VEIN THROMBOSIS
     Dosage: UNK
     Route: 065
  3. COUMADIN /00014802/ [Interacting]
     Indication: PULMONARY EMBOLISM

REACTIONS (6)
  - Drug ineffective [Unknown]
  - International normalised ratio increased [Recovered/Resolved]
  - Haemoglobin decreased [Unknown]
  - Rectal haemorrhage [Recovered/Resolved]
  - Blood urine present [Recovered/Resolved]
  - Drug interaction [Unknown]
